FAERS Safety Report 6663196-7 (Version None)
Quarter: 2010Q2

REPORT INFORMATION
  Report Type: 
  Country: None (occurrence: None)
  Receive Date: 20100401
  Receipt Date: 20100324
  Transmission Date: 20101027
  Serious: Yes (Other)
  Sender: FDA-Public Use
  Company Number: PHEH2010US03294

PATIENT
  Sex: Female

DRUGS (2)
  1. DIOVAN [Suspect]
     Dosage: 160 MG, UNK
     Dates: start: 20100318
  2. VITAMIN D [Interacting]
     Dosage: 50,000 UNITS, UNK

REACTIONS (13)
  - BLOOD PRESSURE DECREASED [None]
  - BLOOD PRESSURE FLUCTUATION [None]
  - BLOOD PRESSURE INCREASED [None]
  - CHEST PAIN [None]
  - CONFUSIONAL STATE [None]
  - DRUG INTERACTION [None]
  - DYSPEPSIA [None]
  - FEELING COLD [None]
  - GAIT DISTURBANCE [None]
  - GALLBLADDER PAIN [None]
  - HEART RATE DECREASED [None]
  - HEPATIC PAIN [None]
  - MUSCULOSKELETAL DISCOMFORT [None]
